FAERS Safety Report 15819933 (Version 2)
Quarter: 2019Q1

REPORT INFORMATION
  Report Type: Spontaneous
  Country: US (occurrence: US)
  Receive Date: 20190114
  Receipt Date: 20190121
  Transmission Date: 20190417
  Serious: No
  Sender: FDA-Public Use
  Company Number: US-AMGEN-USASP2017155151

PATIENT
  Sex: Female

DRUGS (5)
  1. TURMERIC CURCUMIN [Concomitant]
     Active Substance: HERBALS\TURMERIC
     Dosage: UNK UNK, QD
     Route: 063
     Dates: start: 2010
  2. VITAMIN C [Concomitant]
     Active Substance: ASCORBIC ACID
     Dosage: 300 MUG, QD
     Route: 063
     Dates: start: 2010
  3. FOLIC ACID. [Concomitant]
     Active Substance: FOLIC ACID
     Dosage: 800 MUG, QD
     Route: 063
     Dates: start: 2015
  4. NEUPOGEN [Suspect]
     Active Substance: FILGRASTIM
     Indication: MATERNAL EXPOSURE DURING BREAST FEEDING
     Dosage: 40 MUG, QD
     Route: 063
     Dates: start: 2016
  5. PRENATAL [Concomitant]
     Active Substance: VITAMINS
     Dosage: UNK UNK, QD
     Route: 063
     Dates: start: 2015

REACTIONS (1)
  - Maternal exposure during breast feeding [Unknown]

NARRATIVE: CASE EVENT DATE: 2016
